FAERS Safety Report 14094639 (Version 1)
Quarter: 2017Q4

REPORT INFORMATION
  Report Type: Spontaneous
  Country: US (occurrence: US)
  Receive Date: 20171016
  Receipt Date: 20171016
  Transmission Date: 20180321
  Serious: No
  Sender: FDA-Public Use
  Company Number: US-AMGEN-USASP2017046950

PATIENT
  Age: 69 Year
  Sex: Female

DRUGS (1)
  1. PROLIA [Suspect]
     Active Substance: DENOSUMAB
     Indication: PRODUCT USED FOR UNKNOWN INDICATION
     Dosage: UNK
     Route: 065

REACTIONS (10)
  - Urinary tract infection [Unknown]
  - Toothache [Unknown]
  - Pain in jaw [Unknown]
  - Discomfort [Unknown]
  - Bone pain [Unknown]
  - Arthralgia [Unknown]
  - Endodontic procedure [Unknown]
  - Pain in extremity [Unknown]
  - Mastication disorder [Unknown]
  - Myalgia [Unknown]
